FAERS Safety Report 11578837 (Version 3)
Quarter: 2015Q4

REPORT INFORMATION
  Report Type: Spontaneous
  Country: US (occurrence: US)
  Receive Date: 20150930
  Receipt Date: 20151013
  Transmission Date: 20160304
  Serious: No
  Sender: FDA-Public Use
  Company Number: US-JNJFOC-20150916793

PATIENT
  Sex: Female

DRUGS (1)
  1. DURAGESIC [Suspect]
     Active Substance: FENTANYL
     Indication: PAIN
     Route: 062

REACTIONS (9)
  - Product adhesion issue [Not Recovered/Not Resolved]
  - Drug dose omission [Unknown]
  - Application site erosion [Unknown]
  - Pain [Unknown]
  - Product quality issue [Unknown]
  - Fear [Unknown]
  - Adverse drug reaction [Unknown]
  - Wrong technique in product usage process [Not Recovered/Not Resolved]
  - Feeling abnormal [Unknown]

NARRATIVE: CASE EVENT DATE: 2015
